FAERS Safety Report 7631104-8 (Version None)
Quarter: 2011Q3

REPORT INFORMATION
  Report Type: 
  Country: None (occurrence: None)
  Receive Date: 20110725
  Receipt Date: 20081001
  Transmission Date: 20111222
  Serious: Yes (Hospitalization, Other)
  Sender: FDA-Public Use
  Company Number: US-BAYER-2011-007557

PATIENT
  Age: 56 Year
  Sex: Male
  Weight: 111 kg

DRUGS (21)
  1. TRASYLOL [Suspect]
     Indication: CORONARY ARTERY BYPASS
     Dosage: 200 ML PUMP PRIME DOSE (TEST)
     Route: 042
     Dates: start: 20070724, end: 20070724
  2. ASPIRIN [Suspect]
     Dosage: 81 MG, QD
     Route: 048
  3. BESTATIN [Concomitant]
     Dosage: DAILY
     Route: 048
  4. METFORMIN [Concomitant]
     Dosage: 500 MG, BID
     Route: 048
  5. INSULIN [Concomitant]
     Dosage: UNK
     Route: 042
     Dates: start: 20070724, end: 20070724
  6. MORPHINE [Concomitant]
     Dosage: 10 MG, UNK
     Route: 042
     Dates: start: 20070724, end: 20070724
  7. NITROGLYCERIN [Concomitant]
     Dosage: UNK
     Route: 042
     Dates: start: 20070724, end: 20070724
  8. TRASYLOL [Suspect]
     Indication: MITRAL VALVE REPAIR
     Dosage: LOADING DOSE
     Route: 042
     Dates: start: 20070724, end: 20070724
  9. ANCEF [Concomitant]
     Dosage: 2 GMS, UNK
     Route: 042
     Dates: start: 20070724, end: 20070724
  10. LEVOPHED [Concomitant]
     Dosage: UNK
     Route: 042
     Dates: start: 20070724, end: 20070724
  11. PLAVIX [Concomitant]
     Dosage: 75 MG, QD
     Route: 048
  12. ACCUPRIL [Concomitant]
     Dosage: 20 MG, QD
     Route: 048
  13. VERSED [Concomitant]
     Dosage: 5 MG, UNK
     Route: 042
     Dates: start: 20070724, end: 20070724
  14. PROPOFOL [Concomitant]
     Dosage: UNK
     Route: 042
     Dates: start: 20070724, end: 20070724
  15. PAVULON [Concomitant]
     Dosage: UNK
     Route: 042
     Dates: start: 20070724, end: 20070724
  16. HEPARIN [Concomitant]
     Dosage: 40000 UNK, UNK
     Route: 042
     Dates: start: 20070724, end: 20070724
  17. PRIMACOR [Concomitant]
     Dosage: UNK
     Route: 042
     Dates: start: 20070724, end: 20070724
  18. SUBLIMAZE PRESERVATIVE FREE [Concomitant]
     Dosage: UNK
     Route: 042
     Dates: start: 20070724, end: 20070724
  19. PROTAMINE SULFATE [Concomitant]
     Dosage: UNK
     Route: 048
     Dates: start: 20070724, end: 20070724
  20. TRASYLOL [Suspect]
     Dosage: 50 ML/HOUR INFUSION
     Route: 042
     Dates: start: 20070724, end: 20070724
  21. GLIPIZIDE [Concomitant]
     Dosage: 5 MG, BID
     Route: 048

REACTIONS (10)
  - DEPRESSION [None]
  - INJURY [None]
  - GENERAL PHYSICAL HEALTH DETERIORATION [None]
  - EMOTIONAL DISTRESS [None]
  - ANXIETY [None]
  - CONVULSION [None]
  - PAIN [None]
  - PARALYSIS [None]
  - CEREBROVASCULAR ACCIDENT [None]
  - STRESS [None]
